FAERS Safety Report 5619189-1 (Version None)
Quarter: 2008Q1

REPORT INFORMATION
  Report Type: 
  Country: None (occurrence: None)
  Receive Date: 20080207
  Receipt Date: 20080205
  Transmission Date: 20080703
  Serious: Yes (Hospitalization, Disabling)
  Sender: FDA-Public Use
  Company Number: NO-MERCK-0802NOR00002

PATIENT
  Age: 75 Year
  Sex: Female

DRUGS (5)
  1. HYZAAR [Concomitant]
     Route: 048
     Dates: start: 20060601
  2. TRIOBE [Concomitant]
     Route: 065
  3. ACETAMINOPHEN [Concomitant]
     Route: 065
  4. IBUX [Concomitant]
     Route: 065
  5. ZOCOR [Suspect]
     Indication: BLOOD CHOLESTEROL INCREASED
     Route: 048
     Dates: start: 20061201, end: 20071101

REACTIONS (2)
  - DRUG TOXICITY [None]
  - MUSCULAR WEAKNESS [None]
